FAERS Safety Report 24569576 (Version 1)
Quarter: 2024Q4

REPORT INFORMATION
  Report Type: Spontaneous
  Country: IS (occurrence: IS)
  Receive Date: 20241031
  Receipt Date: 20241031
  Transmission Date: 20250115
  Serious: Yes (Other)
  Sender: TEVA
  Company Number: None

PATIENT
  Age: 87 Year
  Sex: Male
  Weight: 109 kg

DRUGS (2)
  1. OXYCODONE [Suspect]
     Active Substance: OXYCODONE
     Indication: Pain
     Dosage: 1 X 2
     Route: 065
     Dates: start: 20240529, end: 20240531
  2. NALOXONE HYDROCHLORIDE\OXYCODONE HYDROCHLORIDE [Suspect]
     Active Substance: NALOXONE HYDROCHLORIDE\OXYCODONE HYDROCHLORIDE
     Indication: Pain
     Dosage: 1 X 2: 5 MG/2.5 MG
     Route: 065
     Dates: start: 20240613, end: 20240708

REACTIONS (4)
  - Delirium [Recovered/Resolved]
  - Hyperaesthesia [Recovered/Resolved]
  - Disorientation [Recovered/Resolved]
  - Hyperaesthesia [Recovered/Resolved]
